FAERS Safety Report 19358788 (Version 2)
Quarter: 2021Q2

REPORT INFORMATION
  Report Type: Spontaneous
  Country: TR (occurrence: TR)
  Receive Date: 20210602
  Receipt Date: 20210616
  Transmission Date: 20210717
  Serious: Yes (Other)
  Sender: FDA-Public Use
  Company Number: TR-GILEAD-2021-0533806

PATIENT
  Age: 37 Year
  Sex: Male

DRUGS (2)
  1. TMP?SMX [Concomitant]
     Active Substance: SULFAMETHOXAZOLE\TRIMETHOPRIM
     Dosage: 160/80: 1X1
     Dates: start: 20190204
  2. GENVOYA [Suspect]
     Active Substance: COBICISTAT\ELVITEGRAVIR\EMTRICITABINE\TENOFOVIR ALAFENAMIDE FUMARATE
     Indication: HIV INFECTION
     Dosage: UNK
     Route: 065
     Dates: start: 20190204

REACTIONS (1)
  - Mycobacterium tuberculosis complex test positive [Recovered/Resolved]

NARRATIVE: CASE EVENT DATE: 20190307
